FAERS Safety Report 7043827-2 (Version None)
Quarter: 2010Q4

REPORT INFORMATION
  Report Type: 
  Country: None (occurrence: None)
  Receive Date: 20101013
  Receipt Date: 20101006
  Transmission Date: 20110411
  Serious: Yes (Hospitalization, Other)
  Sender: FDA-Public Use
  Company Number: CH-GILEAD-2010-0031696

PATIENT
  Age: 51 Year
  Sex: Female

DRUGS (6)
  1. TRUVADA [Suspect]
     Indication: HIV INFECTION
     Route: 048
     Dates: start: 20071101, end: 20100601
  2. EFAVIRENZ [Concomitant]
     Indication: HIV INFECTION
     Route: 048
     Dates: start: 20071101, end: 20100701
  3. METHADONE [Concomitant]
     Route: 048
  4. SEROQUEL [Concomitant]
     Route: 048
  5. ASPIRIN [Concomitant]
     Route: 048
  6. LORAZEPAM [Concomitant]
     Route: 048

REACTIONS (10)
  - HEPATIC ENZYME INCREASED [None]
  - HIGH TURNOVER OSTEOPATHY [None]
  - KIDNEY FIBROSIS [None]
  - OSTEOPOROSIS [None]
  - OSTEOPOROTIC FRACTURE [None]
  - PANCREATITIS [None]
  - RENAL ATROPHY [None]
  - RENAL FAILURE ACUTE [None]
  - RENAL TUBULAR NECROSIS [None]
  - THROMBOCYTOPENIA [None]
